FAERS Safety Report 21290424 (Version 4)
Quarter: 2022Q4

REPORT INFORMATION
  Report Type: Spontaneous
  Country: US (occurrence: US)
  Receive Date: 20220902
  Receipt Date: 20221007
  Transmission Date: 20230112
  Serious: Yes (Other)
  Sender: FDA-Public Use
  Company Number: US-NOVARTISTESTPH-NVSC2022US198587

PATIENT

DRUGS (1)
  1. LUTATHERA [Suspect]
     Active Substance: LUTETIUM OXODOTREOTIDE LU-177
     Indication: Product used for unknown indication
     Dosage: UNK (RECEIVED FIRST DOSE)
     Route: 065

REACTIONS (2)
  - Pneumonia [Recovered/Resolved]
  - Ill-defined disorder [Unknown]
